FAERS Safety Report 9605019 (Version 1)
Quarter: 2013Q4

REPORT INFORMATION
  Report Type: Spontaneous
  Country: US (occurrence: US)
  Receive Date: 20131008
  Receipt Date: 20131008
  Transmission Date: 20140711
  Serious: Yes (Death)
  Sender: FDA-Public Use
  Company Number: US-CELGENEUS-163-50794-13100410

PATIENT
  Age: 68 Year
  Sex: Male

DRUGS (2)
  1. VIDAZA [Suspect]
     Indication: REFRACTORY ANAEMIA WITH AN EXCESS OF BLASTS
     Route: 065
  2. VIDAZA [Suspect]
     Indication: MYELODYSPLASTIC SYNDROME

REACTIONS (2)
  - Myelodysplastic syndrome [Fatal]
  - No therapeutic response [Unknown]
